FAERS Safety Report 18382138 (Version 1)
Quarter: 2020Q4

REPORT INFORMATION
  Report Type: Spontaneous
  Country: US (occurrence: US)
  Receive Date: 20201013
  Receipt Date: 20201013
  Transmission Date: 20210114
  Serious: No
  Sender: FDA-Public Use
  Company Number: None

PATIENT
  Age: 71 Year
  Sex: Female
  Weight: 58.5 kg

DRUGS (9)
  1. FISH OIL [Concomitant]
     Active Substance: FISH OIL
  2. VITAKIN K [Concomitant]
  3. OMNIPAQUE [Suspect]
     Active Substance: IOHEXOL
     Indication: SCAN WITH CONTRAST
     Dates: start: 20201008, end: 20201008
  4. SYNTHROID [Concomitant]
     Active Substance: LEVOTHYROXINE SODIUM
  5. MULTIVITAMIN [Concomitant]
     Active Substance: VITAMINS
  6. VITAMIN B12 [Concomitant]
     Active Substance: CYANOCOBALAMIN
  7. EFFEXOR [Concomitant]
     Active Substance: VENLAFAXINE HYDROCHLORIDE
  8. TRAZODONE [Concomitant]
     Active Substance: TRAZODONE HYDROCHLORIDE
  9. VITAMIN D3 [Concomitant]
     Active Substance: CHOLECALCIFEROL

REACTIONS (9)
  - Nausea [None]
  - Blood sodium decreased [None]
  - Dehydration [None]
  - Dizziness [None]
  - Asthenia [None]
  - Tinnitus [None]
  - Fatigue [None]
  - Palpitations [None]
  - Pruritus [None]

NARRATIVE: CASE EVENT DATE: 20201008
